FAERS Safety Report 21054743 (Version 1)
Quarter: 2022Q3

REPORT INFORMATION
  Report Type: Spontaneous
  Country: ES (occurrence: ES)
  Receive Date: 20220707
  Receipt Date: 20220707
  Transmission Date: 20221027
  Serious: Yes (Other)
  Sender: FDA-Public Use
  Company Number: ES-BoehringerIngelheim-2022-BI-179792

PATIENT
  Age: 57 Year
  Sex: Female

DRUGS (2)
  1. TELMISARTAN [Suspect]
     Active Substance: TELMISARTAN
     Indication: Hypertension
     Dosage: 80/25 MG
  2. AMLODIPINE [Concomitant]
     Active Substance: AMLODIPINE BESYLATE
     Indication: Hypertension

REACTIONS (5)
  - Biliary cyst [Recovered/Resolved]
  - Biliary hamartoma [Recovered/Resolved]
  - Biliary fibrosis [Recovered/Resolved]
  - Cholangitis [Recovered/Resolved]
  - Biliary obstruction [Recovered/Resolved]
